FAERS Safety Report 6247348-6 (Version None)
Quarter: 2009Q2

REPORT INFORMATION
  Report Type: 
  Country: None (occurrence: None)
  Receive Date: 20090626
  Receipt Date: 20090622
  Transmission Date: 20091009
  Serious: Yes (Life-Threatening)
  Sender: FDA-Public Use
  Company Number: B0557880A

PATIENT
  Sex: Female

DRUGS (2)
  1. FLOLAN [Suspect]
     Indication: PULMONARY ARTERIAL HYPERTENSION
     Route: 042
     Dates: start: 20040814
  2. REVATIO [Concomitant]
     Indication: PULMONARY HYPERTENSION
     Dosage: 60MG PER DAY
     Route: 048
     Dates: start: 20080507

REACTIONS (5)
  - CATHETER RELATED INFECTION [None]
  - CATHETER SITE ERYTHEMA [None]
  - CATHETER SITE PAIN [None]
  - DIARRHOEA [None]
  - PYREXIA [None]
